FAERS Safety Report 7980729-9 (Version None)
Quarter: 2011Q4

REPORT INFORMATION
  Report Type: 
  Country: None (occurrence: None)
  Receive Date: 20111214
  Receipt Date: 20111205
  Transmission Date: 20120403
  Serious: Yes (Hospitalization)
  Sender: FDA-Public Use
  Company Number: US-ASTRAZENECA-2011SE47241

PATIENT
  Age: 35 Year
  Sex: Male
  Weight: 108.9 kg

DRUGS (12)
  1. SEROQUEL [Suspect]
     Route: 048
  2. SEROQUEL [Suspect]
     Indication: PSYCHOTIC DISORDER
     Route: 048
  3. CHANTIX [Concomitant]
     Indication: SMOKING CESSATION THERAPY
  4. SEROQUEL [Suspect]
     Indication: PARANOIA
     Route: 048
  5. ZOLOFT [Concomitant]
     Indication: ANTIDEPRESSANT THERAPY
  6. ZOLOFT [Concomitant]
  7. SEROQUEL [Suspect]
     Indication: DEPRESSION
     Route: 048
  8. SEROQUEL [Suspect]
     Route: 048
  9. SEROQUEL [Suspect]
     Indication: SLEEP DISORDER
     Route: 048
  10. SEROQUEL [Suspect]
     Route: 048
  11. SEROQUEL [Suspect]
     Route: 048
  12. ATIVAN [Concomitant]
     Indication: ANXIOLYTIC THERAPY

REACTIONS (6)
  - PARANOIA [None]
  - INSOMNIA [None]
  - DRUG INEFFECTIVE [None]
  - GENERAL PHYSICAL HEALTH DETERIORATION [None]
  - SELF-INJURIOUS IDEATION [None]
  - ANXIETY [None]
